FAERS Safety Report 9739089 (Version 1)
Quarter: 2013Q4

REPORT INFORMATION
  Report Type: Spontaneous
  Country: US (occurrence: US)
  Receive Date: 20131209
  Receipt Date: 20131209
  Transmission Date: 20140711
  Serious: No
  Sender: FDA-Public Use
  Company Number: US-MALLINCKRODT-T201304151

PATIENT
  Age: 69 Year
  Sex: Male
  Weight: 69.84 kg

DRUGS (6)
  1. OPTIMARK [Suspect]
     Indication: NUCLEAR MAGNETIC RESONANCE IMAGING BRAIN
     Dosage: 5 ML, SINGLE
     Route: 042
     Dates: start: 20130815, end: 20130815
  2. LISINOPRIL HYDROCHLORTHIAZID [Concomitant]
     Dosage: 20/12.5 MG, QD
  3. THERAPEUTIC VITAMIN [Concomitant]
  4. CITRACAL PETITES [Concomitant]
  5. VITAMIN D                          /00107901/ [Concomitant]
  6. ZELBORAF [Concomitant]

REACTIONS (4)
  - Injection site pain [Recovered/Resolved]
  - Livedo reticularis [Recovered/Resolved]
  - Chest pain [Recovered/Resolved]
  - Erythema [Recovered/Resolved]
